FAERS Safety Report 18903778 (Version 1)
Quarter: 2021Q1

REPORT INFORMATION
  Report Type: Spontaneous
  Country: US (occurrence: US)
  Receive Date: 20210216
  Receipt Date: 20210216
  Transmission Date: 20210420
  Serious: No
  Sender: FDA-Public Use
  Company Number: None

PATIENT
  Age: 28 Year
  Sex: Female
  Weight: 58.5 kg

DRUGS (4)
  1. SUMATRIPTAN SUCCINATE TABLETS [Suspect]
     Active Substance: SUMATRIPTAN SUCCINATE
     Indication: MIGRAINE
     Dosage: ?          QUANTITY:9 TABLET(S);?
     Route: 048
     Dates: start: 20210216, end: 20210216
  2. OXICODONE [Concomitant]
  3. MOTRIN [Concomitant]
     Active Substance: IBUPROFEN
  4. PROZAC [Concomitant]
     Active Substance: FLUOXETINE HYDROCHLORIDE

REACTIONS (6)
  - Feeling hot [None]
  - Headache [None]
  - Chest discomfort [None]
  - Neck pain [None]
  - Pain in jaw [None]
  - Muscle tightness [None]

NARRATIVE: CASE EVENT DATE: 20210216
